FAERS Safety Report 6826092-8 (Version None)
Quarter: 2010Q3

REPORT INFORMATION
  Report Type: 
  Country: None (occurrence: None)
  Receive Date: 20100709
  Receipt Date: 20100628
  Transmission Date: 20110219
  Serious: Yes (Hospitalization, Other)
  Sender: FDA-Public Use
  Company Number: SE-JNJFOC-20090904807

PATIENT
  Weight: 2.5 kg

DRUGS (14)
  1. INFLIXIMAB [Suspect]
     Indication: DRUG EXPOSURE DURING PREGNANCY
     Route: 064
  2. INFLIXIMAB [Suspect]
     Dosage: GESTATIONAL EXPOSURE WAS DAY 195
     Route: 064
  3. INFLIXIMAB [Suspect]
     Route: 064
  4. MERCAPTOPURINE [Concomitant]
     Indication: DRUG EXPOSURE DURING PREGNANCY
  5. MERCAPTOPURINE [Concomitant]
  6. MESALAMINE [Concomitant]
     Indication: DRUG EXPOSURE DURING PREGNANCY
     Route: 065
  7. PREDNISOLONE [Concomitant]
     Indication: DRUG EXPOSURE DURING PREGNANCY
     Route: 065
  8. HYDROCORTISONE [Concomitant]
     Indication: DRUG EXPOSURE DURING PREGNANCY
     Route: 065
  9. NAPROXEN [Concomitant]
     Indication: DRUG EXPOSURE DURING PREGNANCY
     Route: 064
  10. ANTIBIOTICS [Concomitant]
     Indication: DRUG EXPOSURE DURING PREGNANCY
     Route: 064
  11. FERROUS GLYCINE SULFATE [Concomitant]
     Indication: DRUG EXPOSURE DURING PREGNANCY
     Route: 064
  12. NYSTATIN [Concomitant]
     Indication: DRUG EXPOSURE DURING PREGNANCY
     Route: 064
  13. PENICILLIN V [Concomitant]
     Indication: DRUG EXPOSURE DURING PREGNANCY
     Route: 064
  14. MOMETASONE FUROATE [Concomitant]
     Indication: DRUG EXPOSURE DURING PREGNANCY
     Route: 064

REACTIONS (10)
  - BACTERIAL SEPSIS [None]
  - DACRYOCYSTITIS [None]
  - ESCHERICHIA TEST POSITIVE [None]
  - INTRAVENTRICULAR HAEMORRHAGE NEONATAL [None]
  - JAUNDICE NEONATAL [None]
  - LARGE FOR DATES BABY [None]
  - NEONATAL ASPHYXIA [None]
  - OPHTHALMIA NEONATORUM [None]
  - PREMATURE BABY [None]
  - STAPHYLOCOCCAL INFECTION [None]
